FAERS Safety Report 24073049 (Version 1)
Quarter: 2024Q3

REPORT INFORMATION
  Report Type: Spontaneous
  Country: US (occurrence: US)
  Receive Date: 20240710
  Receipt Date: 20240710
  Transmission Date: 20241016
  Serious: No
  Sender: RECORDATI
  Company Number: US-RECORDATI RARE DISEASE INC.-2024000845

PATIENT

DRUGS (7)
  1. PANHEMATIN [Suspect]
     Active Substance: HEMIN
     Indication: Porphyria acute
     Dosage: UNK
  2. PANHEMATIN [Suspect]
     Active Substance: HEMIN
     Dosage: UNK
     Dates: start: 20240131
  3. PANHEMATIN [Suspect]
     Active Substance: HEMIN
     Dosage: 1/350 MG/VL, PRN
     Dates: start: 20240404
  4. TOPIRAMATE [Suspect]
     Active Substance: TOPIRAMATE
     Indication: Product used for unknown indication
  5. GABAPENTIN [Suspect]
     Active Substance: GABAPENTIN
     Indication: Product used for unknown indication
  6. DEPAKOTE [Concomitant]
     Active Substance: DIVALPROEX SODIUM
     Indication: Product used for unknown indication
     Dosage: 250 MG, BID
     Route: 048
  7. TOPAMAX [Concomitant]
     Active Substance: TOPIRAMATE
     Indication: Product used for unknown indication
     Dosage: 200 MG (IN THE AM) AND 100 MG (IN THE PM)
     Route: 048

REACTIONS (2)
  - Renal impairment [Recovering/Resolving]
  - Therapeutic product effect incomplete [Recovered/Resolved]
